FAERS Safety Report 9357921 (Version 1)
Quarter: 2013Q2

REPORT INFORMATION
  Report Type: Spontaneous
  Country: CH (occurrence: CH)
  Receive Date: 20130620
  Receipt Date: 20130620
  Transmission Date: 20140414
  Serious: Yes (Disabling)
  Sender: FDA-Public Use
  Company Number: CH-ASTRAZENECA-2013SE42758

PATIENT
  Age: 66 Year
  Sex: Male

DRUGS (4)
  1. CASODEX [Suspect]
     Indication: PROSTATE CANCER
     Route: 048
     Dates: start: 20030929, end: 20031030
  2. ZOLADEX LA [Suspect]
     Indication: PROSTATE CANCER
     Route: 058
     Dates: start: 20030929, end: 20060106
  3. CIALIS [Suspect]
     Route: 048
     Dates: start: 2007, end: 2012
  4. LEVITRA [Suspect]
     Route: 048
     Dates: start: 2007, end: 2012

REACTIONS (2)
  - Uveitis [Not Recovered/Not Resolved]
  - Macular oedema [Not Recovered/Not Resolved]
